FAERS Safety Report 19737733 (Version 2)
Quarter: 2021Q3

REPORT INFORMATION
  Report Type: Spontaneous
  Country: RU (occurrence: RU)
  Receive Date: 20210823
  Receipt Date: 20210907
  Transmission Date: 20211014
  Serious: Yes (Other)
  Sender: FDA-Public Use
  Company Number: RU-LUPIN PHARMACEUTICALS INC.-2021-15630

PATIENT
  Age: 62 Year
  Sex: Female

DRUGS (8)
  1. THALIDOMIDE [Concomitant]
     Active Substance: THALIDOMIDE
     Indication: PLASMA CELL MYELOMA
     Dosage: 100 MILLIGRAM, QD
     Route: 065
     Dates: start: 201611
  2. ALPHA LIPOIC [Concomitant]
     Indication: POLYNEUROPATHY
     Dosage: UNK
     Route: 065
  3. DASATINIB. [Concomitant]
     Active Substance: DASATINIB
     Indication: PLASMA CELL MYELOMA
     Dosage: 140 MILLIGRAM, QD
     Route: 065
     Dates: start: 201901
  4. DASATINIB. [Concomitant]
     Active Substance: DASATINIB
     Dosage: 70 MILLIGRAM, QD
     Route: 065
     Dates: start: 202001
  5. IMATINIB MESYLATE. [Suspect]
     Active Substance: IMATINIB MESYLATE
     Indication: CHRONIC MYELOID LEUKAEMIA
     Dosage: 400 MILLIGRAM, QD
     Route: 065
     Dates: start: 201801
  6. IMATINIB MESYLATE. [Suspect]
     Active Substance: IMATINIB MESYLATE
     Dosage: UNK, DOSE REDUCED
     Route: 065
  7. PREGABALIN. [Concomitant]
     Active Substance: PREGABALIN
     Indication: POLYNEUROPATHY
     Dosage: UNK
     Route: 065
  8. VITAMIN B COMPLEX [Concomitant]
     Active Substance: CYANOCOBALAMIN\DEXPANTHENOL\NIACINAMIDE\PYRIDOXINE HYDROCHLORIDE\RIBOFLAVIN 5^-PHOSPHATE SODIUM\THIAMINE HYDROCHLORIDE\VITAMIN B COMPLEX
     Indication: POLYNEUROPATHY
     Dosage: UNK
     Route: 065

REACTIONS (1)
  - Plasma cell myeloma [Not Recovered/Not Resolved]

NARRATIVE: CASE EVENT DATE: 202004
